FAERS Safety Report 23179068 (Version 5)
Quarter: 2024Q3

REPORT INFORMATION
  Report Type: Spontaneous
  Country: CA (occurrence: CA)
  Receive Date: 20231113
  Receipt Date: 20240805
  Transmission Date: 20241017
  Serious: Yes (Hospitalization, Other)
  Sender: PFIZER
  Company Number: CA-PFIZER INC-202300357924

PATIENT
  Age: 13 Year
  Sex: Female

DRUGS (11)
  1. SOMATROPIN [Suspect]
     Active Substance: SOMATROPIN
     Indication: Turner^s syndrome
     Dosage: 800 UG, 1X/DAY, DISCONTINUED
     Route: 058
     Dates: start: 20180725
  2. SOMATROPIN [Suspect]
     Active Substance: SOMATROPIN
     Dosage: 750 UG, 1X/DAY
     Route: 058
     Dates: start: 2020, end: 2020
  3. SOMATROPIN [Suspect]
     Active Substance: SOMATROPIN
     Dosage: 600 UG, 1X/DAY
     Route: 058
     Dates: start: 2020, end: 20210106
  4. SOMATROPIN [Suspect]
     Active Substance: SOMATROPIN
     Dosage: 700 UG, 1X/DAY
     Route: 058
     Dates: start: 20210107, end: 2021
  5. SOMATROPIN [Suspect]
     Active Substance: SOMATROPIN
     Dosage: 1200 UG, 1X/DAY, DISCONTINUED
     Route: 058
     Dates: start: 2021
  6. SOMATROPIN [Suspect]
     Active Substance: SOMATROPIN
     Dosage: 1650 UG, 1X/DAY
     Route: 058
  7. SOMATROPIN [Suspect]
     Active Substance: SOMATROPIN
     Dosage: 1500 UG, 6 TIMES IN A WEEK
     Route: 058
  8. AMLODIPINE [Suspect]
     Active Substance: AMLODIPINE BESYLATE
     Dosage: 2500 UG, 1X/DAY
     Dates: start: 2021, end: 2021
  9. AMLODIPINE [Suspect]
     Active Substance: AMLODIPINE BESYLATE
     Dosage: 5 MG, 1X/DAY
     Dates: start: 2021, end: 2022
  10. AMLODIPINE [Suspect]
     Active Substance: AMLODIPINE BESYLATE
     Dosage: 7500 UG, 1X/DAY
     Dates: start: 2022
  11. ASPIRIN [Concomitant]
     Active Substance: ASPIRIN
     Dosage: UNK

REACTIONS (5)
  - Cardiac operation [Unknown]
  - Coronary artery bypass [Unknown]
  - Arthralgia [Not Recovered/Not Resolved]
  - Pain in extremity [Not Recovered/Not Resolved]
  - Knee deformity [Not Recovered/Not Resolved]

NARRATIVE: CASE EVENT DATE: 20230101
